FAERS Safety Report 8531917 (Version 3)
Quarter: 2013Q4

REPORT INFORMATION
  Report Type: Spontaneous
  Country: US (occurrence: US)
  Receive Date: 20120426
  Receipt Date: 20131016
  Transmission Date: 20140711
  Serious: Yes (Other)
  Sender: FDA-Public Use
  Company Number: US-ROCHE-1061676

PATIENT
  Age: 16 Year
  Sex: Female

DRUGS (2)
  1. ACCUTANE [Suspect]
     Indication: ACNE
     Dosage: FREQUENCY: ONE TABLET TWICE A DAY ON EVEN DAYS AND ON TABLET ONE A DAY ON ODD DAYS.
     Route: 048
     Dates: start: 20031105, end: 20040303
  2. ACCUTANE [Suspect]
     Route: 048
     Dates: start: 20040303

REACTIONS (8)
  - Crohn^s disease [Unknown]
  - Inflammatory bowel disease [Unknown]
  - Injury [Unknown]
  - Cheilitis [Unknown]
  - Xerosis [Unknown]
  - Epistaxis [Recovered/Resolved]
  - Blood cholesterol increased [Unknown]
  - Blood triglycerides increased [Unknown]
